FAERS Safety Report 4386745-0 (Version None)
Quarter: 2004Q2

REPORT INFORMATION
  Report Type: 
  Country: None (occurrence: None)
  Receive Date: 20040629
  Receipt Date: 20040622
  Transmission Date: 20050107
  Serious: Yes (Life-Threatening, Hospitalization, Other)
  Sender: FDA-Public Use
  Company Number: AE-MERCK-0406USA01953

PATIENT
  Age: 65 Year

DRUGS (3)
  1. ASPIRIN [Concomitant]
     Route: 065
  2. CONCOR [Concomitant]
     Route: 065
  3. ZOCOR [Suspect]
     Indication: BLOOD CHOLESTEROL INCREASED
     Route: 048

REACTIONS (1)
  - ACUTE MYOCARDIAL INFARCTION [None]
